FAERS Safety Report 8224262-8 (Version None)
Quarter: 2012Q1

REPORT INFORMATION
  Report Type: 
  Country: None (occurrence: None)
  Receive Date: 20120321
  Receipt Date: 20120313
  Transmission Date: 20120608
  Serious: Yes (Hospitalization, Other)
  Sender: FDA-Public Use
  Company Number: PHHY2011JP112984

PATIENT
  Sex: Male
  Weight: 73 kg

DRUGS (5)
  1. CALBLOCK [Concomitant]
     Indication: HYPERTENSION
     Dosage: 8 MG, UNK
     Route: 048
     Dates: start: 20100519, end: 20120202
  2. CYANAMIDE [Concomitant]
     Indication: ALCOHOLISM
     Route: 048
     Dates: start: 20120202
  3. URSO 250 [Concomitant]
     Indication: LIVER DISORDER
     Dosage: 600 MG, UNK
     Route: 048
     Dates: start: 20100519, end: 20120202
  4. RASILEZ [Suspect]
     Indication: HYPERTENSION
     Dosage: 150 MG, DAILY
     Route: 048
     Dates: start: 20111107, end: 20111203
  5. DIOVAN [Concomitant]
     Indication: HYPERTENSION
     Dosage: 160 MG, UNK
     Route: 048
     Dates: start: 20100519, end: 20120202

REACTIONS (5)
  - DEPRESSED LEVEL OF CONSCIOUSNESS [None]
  - HYPOTENSION [None]
  - TRANSIENT ISCHAEMIC ATTACK [None]
  - PARTIAL SEIZURES [None]
  - FALL [None]
